FAERS Safety Report 22722003 (Version 2)
Quarter: 2024Q2

REPORT INFORMATION
  Report Type: Spontaneous
  Country: CA (occurrence: CA)
  Receive Date: 20230719
  Receipt Date: 20240503
  Transmission Date: 20240716
  Serious: Yes (Death)
  Sender: FDA-Public Use
  Company Number: CA-IGSA-BIG0024500

PATIENT
  Age: 51 Year
  Sex: Male

DRUGS (2)
  1. ALBUMIN HUMAN [Suspect]
     Active Substance: ALBUMIN HUMAN
     Indication: Product used for unknown indication
     Dosage: UNK, UNKNOWN
     Route: 042
  2. ALBUMIN HUMAN [Suspect]
     Active Substance: ALBUMIN HUMAN
     Dosage: 100 MILLILITER, UNKNOWN
     Route: 042

REACTIONS (3)
  - Transfusion-related circulatory overload [Fatal]
  - Blood pressure increased [Fatal]
  - Dyspnoea [Fatal]
